FAERS Safety Report 4327611-6 (Version None)
Quarter: 2004Q1

REPORT INFORMATION
  Report Type: 
  Country: None (occurrence: None)
  Receive Date: 20040325
  Receipt Date: 20040311
  Transmission Date: 20041129
  Serious: Yes (Hospitalization)
  Sender: FDA-Public Use
  Company Number: S03-FRA-04807-01

PATIENT
  Age: 57 Year
  Sex: Male

DRUGS (7)
  1. SEROPRAM (CITALOPRAM HYDROBROMIDE) [Suspect]
     Indication: DEPRESSION
     Dosage: 1 TABLET BID PO
     Route: 048
     Dates: start: 20030302, end: 20030903
  2. STILNOX (ZOLPIDEM) [Suspect]
     Indication: ANXIETY
     Dosage: 1 UNITS QD PO
     Route: 048
  3. ACUILIX [Suspect]
     Indication: ESSENTIAL HYPERTENSION
  4. MEDROL [Suspect]
     Indication: MYALGIA
     Dosage: 16 MG QD PO
     Route: 048
  5. MEDROL [Suspect]
     Indication: MYOSITIS
     Dosage: 16 MG QD PO
     Route: 048
  6. MYOLASTAN (TETRAZEPAM) [Suspect]
     Indication: MYALGIA
     Dosage: 200 MG QD PO
     Route: 048
  7. MYOLASTAN (TETRAZEPAM) [Suspect]
     Indication: MYOSITIS
     Dosage: 200 MG QD PO
     Route: 048

REACTIONS (3)
  - BLOOD CREATINE PHOSPHOKINASE INCREASED [None]
  - MUSCLE DISORDER [None]
  - MYALGIA [None]
